FAERS Safety Report 8623900-5 (Version None)
Quarter: 2012Q3

REPORT INFORMATION
  Report Type: 
  Country: None (occurrence: None)
  Receive Date: 20120827
  Receipt Date: 20120815
  Transmission Date: 20120928
  Serious: Yes (Hospitalization, Other)
  Sender: FDA-Public Use
  Company Number: US-009507513-1110USA04123

PATIENT

DRUGS (16)
  1. FOSAMAX [Suspect]
     Indication: OSTEOPOROSIS
     Dosage: 10 MG, QD
     Route: 048
     Dates: start: 19970701, end: 20011001
  2. FOSAMAX [Suspect]
     Dosage: 70 MG, QW
     Route: 048
     Dates: start: 20011101, end: 20100401
  3. FLUTICASONE PROPIONATE [Suspect]
     Indication: ASTHMA
  4. ALBUTEROL [Concomitant]
     Indication: ASTHMA
  5. NASACORT [Concomitant]
     Indication: ASTHMA
  6. CALCIUM (UNSPECIFIED) [Concomitant]
     Indication: OSTEOPOROSIS
     Dosage: 500 MG, QD
     Dates: start: 20000101
  7. AVALIDE [Concomitant]
     Indication: HYPERTENSION
  8. ZESTRIL [Concomitant]
     Indication: HYPERTENSION
  9. VITAMIN D [Concomitant]
     Indication: OSTEOPOROSIS
     Dosage: 400 IU, QD
     Dates: start: 20000101
  10. OS-CAL (CALCIUM CARBONATE) [Concomitant]
  11. CHOLECALCIFEROL [Concomitant]
     Indication: OSTEOPOROSIS
     Dosage: 1000 IU, QD
     Dates: start: 20000101
  12. PROVENTIL-HFA [Concomitant]
     Indication: ASTHMA
  13. ASTELIN [Concomitant]
     Indication: RHINITIS ALLERGIC
  14. AMLODIPINE [Concomitant]
     Indication: HYPERTENSION
  15. AVAPRO [Concomitant]
     Indication: HYPERTENSION
  16. LIPITOR [Concomitant]
     Indication: HYPERLIPIDAEMIA

REACTIONS (54)
  - CHOLELITHIASIS [None]
  - INSOMNIA [None]
  - HAEMATURIA [None]
  - DYSTHYMIC DISORDER [None]
  - BONE DISORDER [None]
  - UTERINE CERVIX ATROPHY [None]
  - BLOOD URINE PRESENT [None]
  - HEPATIC STEATOSIS [None]
  - COUGH [None]
  - DRUG HYPERSENSITIVITY [None]
  - DYSPEPSIA [None]
  - UPPER RESPIRATORY TRACT INFECTION [None]
  - PLEURAL EFFUSION [None]
  - HYPERKERATOSIS [None]
  - CAROTID BRUIT [None]
  - TYPE 2 DIABETES MELLITUS [None]
  - DIVERTICULITIS [None]
  - SPINAL OSTEOARTHRITIS [None]
  - VITAMIN B COMPLEX DEFICIENCY [None]
  - ESCHERICHIA BACTERAEMIA [None]
  - ADVERSE EVENT [None]
  - INTERNATIONAL NORMALISED RATIO INCREASED [None]
  - FEMUR FRACTURE [None]
  - VARICOSE VEIN [None]
  - NASOPHARYNGITIS [None]
  - TRANSAMINASES INCREASED [None]
  - ACUTE SINUSITIS [None]
  - ACROCHORDON [None]
  - CONSTIPATION [None]
  - ANAEMIA POSTOPERATIVE [None]
  - ANAEMIA [None]
  - FIBROCYSTIC BREAST DISEASE [None]
  - ABDOMINAL PAIN [None]
  - OEDEMA PERIPHERAL [None]
  - LIVER FUNCTION TEST ABNORMAL [None]
  - PYREXIA [None]
  - LOW TURNOVER OSTEOPATHY [None]
  - DIASTOLIC DYSFUNCTION [None]
  - ATROPHY [None]
  - FALL [None]
  - THROMBOPHLEBITIS SUPERFICIAL [None]
  - ANXIETY [None]
  - CERUMEN IMPACTION [None]
  - DEPRESSION [None]
  - OEDEMA [None]
  - CARDIAC FAILURE CONGESTIVE [None]
  - BACK PAIN [None]
  - VITAMIN D DEFICIENCY [None]
  - ECTROPION OF CERVIX [None]
  - ACUTE STRESS DISORDER [None]
  - ASTHMA [None]
  - BRONCHITIS [None]
  - HYPERCALCAEMIA [None]
  - URINARY TRACT INFECTION [None]
